FAERS Safety Report 12823905 (Version 1)
Quarter: 2016Q4

REPORT INFORMATION
  Report Type: Spontaneous
  Country: US (occurrence: US)
  Receive Date: 20161006
  Receipt Date: 20161006
  Transmission Date: 20170207
  Serious: Yes (Other)
  Sender: FDA-Public Use
  Company Number: US-AMGEN-USASP2016133737

PATIENT
  Sex: Female

DRUGS (1)
  1. XGEVA [Suspect]
     Active Substance: DENOSUMAB
     Indication: BONE CANCER METASTATIC
     Dosage: UNK, Q4WK
     Route: 065
     Dates: start: 201509

REACTIONS (4)
  - Device related infection [Unknown]
  - Drug dose omission [Unknown]
  - Tooth abscess [Not Recovered/Not Resolved]
  - Tooth disorder [Not Recovered/Not Resolved]
